FAERS Safety Report 10885402 (Version 1)
Quarter: 2015Q1

REPORT INFORMATION
  Report Type: Spontaneous
  Country: US (occurrence: None)
  Receive Date: 20150227
  Receipt Date: 20150227
  Transmission Date: 20150721
  Serious: No
  Sender: FDA-Public Use
  Company Number: None

PATIENT
  Age: 43 Year
  Sex: Male

DRUGS (2)
  1. HUMIRA [Suspect]
     Active Substance: ADALIMUMAB
     Dosage: INJECT ONE PEN EVERY OTHER WEEK SUBCUTANEOUS
     Route: 058
  2. HUMIRA [Suspect]
     Active Substance: ADALIMUMAB
     Indication: RHEUMATOID ARTHRITIS
     Dosage: INJECT ONE PEN EVERY OTHER WEEK SUBCUTANEOUS
     Route: 058

REACTIONS (5)
  - Injection site reaction [None]
  - Injection site pain [None]
  - Nausea [None]
  - Somnolence [None]
  - Fatigue [None]

NARRATIVE: CASE EVENT DATE: 20150226
